FAERS Safety Report 4330814-8 (Version None)
Quarter: 2004Q1

REPORT INFORMATION
  Report Type: 
  Country: None (occurrence: None)
  Receive Date: 20040331
  Receipt Date: 20040311
  Transmission Date: 20041129
  Serious: Yes (Hospitalization, Other)
  Sender: FDA-Public Use
  Company Number: USA040361743

PATIENT
  Age: 65 Year
  Sex: Female

DRUGS (1)
  1. HUMALOG [Suspect]
     Indication: DIABETES MELLITUS
     Dates: start: 20030901

REACTIONS (3)
  - BLOOD GLUCOSE INCREASED [None]
  - CYSTITIS [None]
  - PHARMACEUTICAL PRODUCT COMPLAINT [None]
